FAERS Safety Report 7447033-9 (Version None)
Quarter: 2011Q2

REPORT INFORMATION
  Report Type: 
  Country: None (occurrence: None)
  Receive Date: 20110429
  Receipt Date: 20110419
  Transmission Date: 20111010
  Serious: Yes (Other)
  Sender: FDA-Public Use
  Company Number: US-JNJFOC-20110410024

PATIENT
  Sex: Female
  Weight: 67.13 kg

DRUGS (8)
  1. SPIRIVA [Concomitant]
     Indication: BRONCHITIS
     Route: 055
  2. FLONASE [Concomitant]
     Indication: BRONCHITIS
     Route: 055
  3. MAXALT [Concomitant]
     Indication: MIGRAINE
     Route: 048
  4. FIORICET [Concomitant]
     Indication: ARTHRALGIA
     Dosage: 50/325 MG  AS NEEDED
     Route: 048
  5. FIORICET [Concomitant]
     Indication: PAIN
     Dosage: 50/325 MG  AS NEEDED
     Route: 048
  6. TOPAMAX [Suspect]
     Indication: MIGRAINE PROPHYLAXIS
     Route: 048
  7. VERAPAMIL [Concomitant]
     Indication: MIGRAINE
     Route: 048
  8. CHANTIX [Concomitant]
     Indication: SMOKING CESSATION THERAPY
     Route: 048

REACTIONS (4)
  - HAIR COLOUR CHANGES [None]
  - FALL [None]
  - ALOPECIA [None]
  - LOSS OF CONSCIOUSNESS [None]
